FAERS Safety Report 12803165 (Version 1)
Quarter: 2016Q4

REPORT INFORMATION
  Report Type: Spontaneous
  Country: JP (occurrence: JP)
  Receive Date: 20161003
  Receipt Date: 20161003
  Transmission Date: 20170207
  Serious: Yes (Other)
  Sender: FDA-Public Use
  Company Number: JP-JNJFOC-20160702424

PATIENT
  Age: 46 Year
  Sex: Female
  Weight: 64 kg

DRUGS (12)
  1. LIDOMEX [Concomitant]
     Active Substance: PREDNISOLONE VALERATE ACETATE
     Dosage: BEFORE ADMINISTRATION OF CANAGLIFLOZIN
     Route: 062
     Dates: start: 20160513
  2. ALLELOCK [Concomitant]
     Active Substance: OLOPATADINE HYDROCHLORIDE
     Route: 048
  3. PATANOL [Concomitant]
     Active Substance: OLOPATADINE HYDROCHLORIDE
     Route: 031
  4. METGLUCO [Concomitant]
     Active Substance: METFORMIN HYDROCHLORIDE
     Indication: TYPE 2 DIABETES MELLITUS
     Dosage: STARTED BEFORE THE ADMINISTRATION OF CANAGLU
     Route: 048
  5. TENELIA [Concomitant]
     Active Substance: TENELIGLIPTIN
     Indication: TYPE 2 DIABETES MELLITUS
     Dosage: STARTED BEFORE THE ADMINISTRATION OF CANAGLU
     Route: 048
  6. ANTEBATE [Concomitant]
     Active Substance: BETAMETHASONE DIPROPIONATE
     Dosage: BEFORE ADMINISTRATION OF CANAGLIFLOZIN
     Route: 062
     Dates: start: 20160513
  7. LANTUS [Concomitant]
     Active Substance: INSULIN GLARGINE
     Indication: TYPE 2 DIABETES MELLITUS
     Dosage: STARTED BEFORE THE ADMINISTRATION OF CANAGLU
     Route: 051
  8. VICTOZA [Suspect]
     Active Substance: LIRAGLUTIDE
     Indication: TYPE 2 DIABETES MELLITUS
     Route: 058
  9. HIRUDOID [Concomitant]
     Active Substance: GLYCOSAMINOGLYCANS
     Dosage: BEFORE ADMINISTRATION OF CANAGLIFLOZIN
     Route: 062
     Dates: start: 20160513
  10. CANAGLU [Suspect]
     Active Substance: CANAGLIFLOZIN
     Indication: TYPE 2 DIABETES MELLITUS
     Route: 048
     Dates: start: 20160322
  11. CRESTOR [Concomitant]
     Active Substance: ROSUVASTATIN CALCIUM
     Route: 048
  12. FULMETA [Concomitant]
     Active Substance: MOMETASONE
     Dosage: BEFORE ADMINISTRATION OF CANAGLIFLOZIN
     Route: 062
     Dates: start: 20160513

REACTIONS (3)
  - Respiratory tract infection [Recovered/Resolved]
  - Vomiting [Recovered/Resolved]
  - Psoriasis [Not Recovered/Not Resolved]

NARRATIVE: CASE EVENT DATE: 20160408
